FAERS Safety Report 4791727-0 (Version None)
Quarter: 2005Q4

REPORT INFORMATION
  Report Type: 
  Country: None (occurrence: None)
  Receive Date: 20051005
  Receipt Date: 20050919
  Transmission Date: 20060501
  Serious: Yes (Other)
  Sender: FDA-Public Use
  Company Number: FR_050907152

PATIENT
  Age: 50 Year
  Sex: Female

DRUGS (2)
  1. PROZAC [Suspect]
     Indication: DEPRESSION
     Dosage: 20 MG/2 DAY
     Dates: start: 20040301
  2. LEVOTHYROXINE SODIUM [Concomitant]

REACTIONS (1)
  - HEPATOCELLULAR DAMAGE [None]
